FAERS Safety Report 16812846 (Version 1)
Quarter: 2019Q3

REPORT INFORMATION
  Report Type: Spontaneous
  Country: US (occurrence: US)
  Receive Date: 20190916
  Receipt Date: 20190916
  Transmission Date: 20191005
  Serious: Yes (Hospitalization)
  Sender: FDA-Public Use
  Company Number: US-ANIPHARMA-2019-US-017086

PATIENT
  Age: 32 Year
  Sex: Female

DRUGS (2)
  1. ROVALPITUZUMAB TESIRINE [Suspect]
     Active Substance: ROVALPITUZUMAB TESIRINE
     Indication: HEPATOCELLULAR CARCINOMA
  2. DEXAMETHASONE (NON-SPECIFIC) [Suspect]
     Active Substance: DEXAMETHASONE
     Indication: HEPATOCELLULAR CARCINOMA

REACTIONS (1)
  - Hyperammonaemic encephalopathy [Recovered/Resolved]
